FAERS Safety Report 8648588 (Version 4)
Quarter: 2012Q4

REPORT INFORMATION
  Report Type: 
  Country: DE (occurrence: DE)
  Receive Date: 20120703
  Receipt Date: 20120829
  Transmission Date: 20130627
  Serious: Yes (Death)
  Sender: FDA-Public Use
  Company Number: DE-GLAXOSMITHKLINE-D0076092A

PATIENT
  Age: 89 Year
  Sex: Male
  Weight: 80 kg

DRUGS (5)
  1. ARIXTRA [Suspect]
     Indication: CARDIAC MYXOMA
     Dosage: 5MG Per day
     Route: 058
     Dates: start: 201206, end: 20120625
  2. DIOVAN [Concomitant]
     Indication: HYPERTENSION
     Dosage: 80MG per day
     Route: 048
  3. ESIDRIX [Concomitant]
     Indication: HYPERTENSION
     Dosage: 12.5MG per day
     Route: 048
  4. MESTINON [Concomitant]
     Indication: MYASTHENIA GRAVIS
     Dosage: 180MG per day
     Route: 048
  5. NOVODIGAL [Concomitant]
     Indication: ATRIAL FIBRILLATION
     Dosage: .2MG per day
     Route: 048

REACTIONS (5)
  - Rhabdomyolysis [Not Recovered/Not Resolved]
  - Cerebral haemorrhage [Fatal]
  - Fall [Recovered/Resolved]
  - Apnoea [Fatal]
  - Paraparesis [Unknown]
